FAERS Safety Report 5051447-4 (Version None)
Quarter: 2006Q3

REPORT INFORMATION
  Report Type: 
  Country: None (occurrence: None)
  Receive Date: 20060710
  Receipt Date: 20060626
  Transmission Date: 20061208
  Serious: Yes (Hospitalization, Other)
  Sender: FDA-Public Use
  Company Number: 226149

PATIENT
  Age: 74 Year
  Sex: Female

DRUGS (13)
  1. AVASTIN [Suspect]
     Indication: NON-SMALL CELL LUNG CANCER
     Dosage: 15 MG/KG, Q3W, INTRAVENOUS
     Route: 042
     Dates: start: 20060302, end: 20060419
  2. TAXOL [Concomitant]
  3. CARBOPLATIN [Concomitant]
  4. ASTATIN CALCIUM) [Concomitant]
  5. SINGULAIR [Concomitant]
  6. XALATAN [Concomitant]
  7. TRAZODONE HCL [Concomitant]
  8. COMBIVENT [Concomitant]
  9. MINESTRIN (ETHINYL ESTRADIOL, NORETHINDRONE ACETATE) [Concomitant]
  10. ATIVAN [Concomitant]
  11. ALDACTONE [Concomitant]
  12. CARDIZEM [Concomitant]
  13. DEXAMETHASONE [Concomitant]

REACTIONS (1)
  - INAPPROPRIATE ANTIDIURETIC HORMONE SECRETION [None]
